FAERS Safety Report 4924472-9 (Version None)
Quarter: 2006Q1

REPORT INFORMATION
  Report Type: 
  Country: None (occurrence: None)
  Receive Date: 20060221
  Receipt Date: 20060209
  Transmission Date: 20060701
  Serious: Yes (Death, Hospitalization)
  Sender: FDA-Public Use
  Company Number: 163-20785-05100183

PATIENT
  Age: 72 Year
  Sex: Male
  Weight: 102.3 kg

DRUGS (19)
  1. THALOMID [Suspect]
     Indication: MULTIPLE MYELOMA
     Dosage: 50-150MG, QD, ORAL
     Route: 048
     Dates: start: 20050606, end: 20050627
  2. DEXAMETHASONE [Concomitant]
     Indication: MULTIPLE MYELOMA
     Dosage: 1 CYCLE
  3. COREG [Concomitant]
  4. DEMADEX [Concomitant]
  5. COUMADIN [Concomitant]
  6. LOVENOX [Concomitant]
  7. PROTONIX [Concomitant]
  8. PROSCAR [Concomitant]
  9. FLOMAX (TAMSULOSIN HYDROCHLROIDE) [Concomitant]
  10. ZETIA (EXETIMIBE) [Concomitant]
  11. INSULIN [Concomitant]
  12. COLACE (COCUSATE SODIUM) [Concomitant]
  13. SENOKOT [Concomitant]
  14. PROTEIN SUPPLEMENT (PROTEIN SUPPLEMENT) [Concomitant]
  15. VITAMIN W/B COMPLEX (B-KOMPLEX ^LECIVA^) [Concomitant]
  16. FOLIC ACID [Concomitant]
  17. VITAMIN E [Concomitant]
  18. CAROTENE (BETACAROTENE) [Concomitant]
  19. ALPHA-LIPOIC ACID (THIOCTIC ACID) [Concomitant]

REACTIONS (27)
  - ALANINE AMINOTRANSFERASE INCREASED [None]
  - ASPARTATE AMINOTRANSFERASE INCREASED [None]
  - ASTHENIA [None]
  - BLOOD ALKALINE PHOSPHATASE INCREASED [None]
  - BLOOD CALCIUM DECREASED [None]
  - BLOOD GLUCOSE INCREASED [None]
  - BLOOD SODIUM DECREASED [None]
  - CELLULITIS [None]
  - CENTRAL LINE INFECTION [None]
  - COAGULOPATHY [None]
  - DRUG TOXICITY [None]
  - EJECTION FRACTION DECREASED [None]
  - FLUID OVERLOAD [None]
  - HAEMATOCRIT INCREASED [None]
  - HAEMOGLOBIN DECREASED [None]
  - HAEMOGLOBIN INCREASED [None]
  - HYPERKALAEMIA [None]
  - HYPOTENSION [None]
  - HYPOTHERMIA [None]
  - LOWER GASTROINTESTINAL HAEMORRHAGE [None]
  - ORAL INTAKE REDUCED [None]
  - PHARYNGOLARYNGEAL PAIN [None]
  - PLATELET COUNT DECREASED [None]
  - RENAL FAILURE ACUTE [None]
  - RESPIRATORY DISORDER [None]
  - RESUSCITATION [None]
  - SEPSIS [None]
